FAERS Safety Report 6539867-X (Version None)
Quarter: 2010Q1

REPORT INFORMATION
  Report Type: 
  Country: None (occurrence: None)
  Receive Date: 20100115
  Receipt Date: 20100104
  Transmission Date: 20100710
  Serious: Yes (Death, Life-Threatening, Hospitalization, Other)
  Sender: FDA-Public Use
  Company Number: US-WYE-H12834510

PATIENT
  Sex: Female

DRUGS (4)
  1. PROTONIX [Suspect]
     Indication: GASTROOESOPHAGEAL REFLUX DISEASE
     Dosage: UNKNOWN
     Route: 042
     Dates: start: 20050702, end: 20050706
  2. PROTONIX [Suspect]
     Dosage: 1 DOSE EVERY 1 TOT
     Route: 042
     Dates: start: 20050101, end: 20050101
  3. PROTONIX [Suspect]
     Dosage: 40 MG EVERY 1 TOT
     Route: 048
     Dates: start: 20050301, end: 20050301
  4. VITAMINS [Concomitant]

REACTIONS (19)
  - BLOOD GLUCOSE INCREASED [None]
  - CHOLANGITIS [None]
  - CIRCULATORY COLLAPSE [None]
  - COMA [None]
  - DEPRESSION [None]
  - DERMATITIS BULLOUS [None]
  - DRUG TOXICITY [None]
  - HYPERSENSITIVITY [None]
  - LIVER INJURY [None]
  - OEDEMA [None]
  - PANCREATIC INSUFFICIENCY [None]
  - PANCREATITIS [None]
  - RASH ERYTHEMATOUS [None]
  - RASH PRURITIC [None]
  - RESPIRATORY ARREST [None]
  - RESPIRATORY FAILURE [None]
  - SHOCK [None]
  - STEVENS-JOHNSON SYNDROME [None]
  - TOXIC EPIDERMAL NECROLYSIS [None]
